FAERS Safety Report 9894038 (Version 2)
Quarter: 2014Q1

REPORT INFORMATION
  Report Type: Spontaneous
  Country: US (occurrence: US)
  Receive Date: 20140213
  Receipt Date: 20140324
  Transmission Date: 20141002
  Serious: No
  Sender: FDA-Public Use
  Company Number: US-PFIZER INC-2014038789

PATIENT
  Age: 52 Year
  Sex: Male

DRUGS (1)
  1. TETRACYCLINE HCL [Suspect]
     Dosage: UNK
     Dates: start: 196207, end: 196710

REACTIONS (2)
  - Tooth discolouration [Unknown]
  - Hair colour changes [Unknown]
